FAERS Safety Report 20901253 (Version 1)
Quarter: 2022Q2

REPORT INFORMATION
  Report Type: Spontaneous
  Country: US (occurrence: None)
  Receive Date: 20220601
  Receipt Date: 20220601
  Transmission Date: 20220721
  Serious: No
  Sender: FDA-Public Use
  Company Number: None

PATIENT
  Sex: Female

DRUGS (1)
  1. XEOMIN [Suspect]
     Active Substance: INCOBOTULINUMTOXINA
     Indication: Blepharospasm
     Dosage: 70 UNITS EVERY 2 MONTHS INTRAMUSCULARLY?
     Route: 030
     Dates: start: 20220504

REACTIONS (1)
  - Therapy non-responder [None]
